FAERS Safety Report 23333082 (Version 1)
Quarter: 2023Q4

REPORT INFORMATION
  Report Type: Report from Study
  Country: JP (occurrence: JP)
  Receive Date: 20231222
  Receipt Date: 20231222
  Transmission Date: 20240109
  Serious: Yes (Other)
  Sender: FDA-Public Use
  Company Number: JP-teijin-201804944_FET_P_1

PATIENT
  Age: 34 Year
  Sex: Female
  Weight: 47.6 kg

DRUGS (42)
  1. FEBUXOSTAT [Suspect]
     Active Substance: FEBUXOSTAT
     Indication: Tumour lysis syndrome
     Dosage: 60 MILLIGRAM, QD
     Route: 048
     Dates: start: 20180315, end: 20180321
  2. FEBUXOSTAT [Suspect]
     Active Substance: FEBUXOSTAT
     Dosage: 20 MILLIGRAM, QD
     Route: 048
     Dates: start: 20180322, end: 20180329
  3. CODEINE PHOSPHATE [Suspect]
     Active Substance: CODEINE PHOSPHATE
     Indication: Diarrhoea
     Dosage: 1 GRAM
     Route: 048
     Dates: start: 20180328
  4. CYTARABINE [Suspect]
     Active Substance: CYTARABINE
     Indication: Acute myeloid leukaemia
     Dosage: 150 MILLIGRAM, QD
     Route: 065
     Dates: start: 20180316, end: 20180322
  5. AMITIZA [Suspect]
     Active Substance: LUBIPROSTONE
     Indication: Constipation
     Dosage: 24 MICROGRAM, BID
     Route: 048
     Dates: start: 20180320, end: 20180322
  6. IDAMYCIN [Suspect]
     Active Substance: IDARUBICIN HYDROCHLORIDE
     Indication: Acute myeloid leukaemia
     Dosage: 18 MILLIGRAM, QD
     Route: 065
     Dates: start: 20180316, end: 20180318
  7. CEFEPIME [Suspect]
     Active Substance: CEFEPIME HYDROCHLORIDE
     Indication: Neutropenia
     Dosage: 2 GRAM
     Route: 065
     Dates: start: 20180315, end: 20180327
  8. CEFEPIME [Suspect]
     Active Substance: CEFEPIME HYDROCHLORIDE
     Dosage: 2 GRAM, QD
     Route: 065
     Dates: start: 20180402, end: 20180405
  9. SOLDEM 3A [Suspect]
     Active Substance: CARBOHYDRATES\POTASSIUM CHLORIDE\SODIUM CHLORIDE\SODIUM LACTATE
     Indication: Prophylaxis
     Dosage: 500 MILLILITER
     Route: 065
     Dates: start: 20180315, end: 20180323
  10. RASBURICASE [Suspect]
     Active Substance: RASBURICASE
     Indication: Prophylaxis
     Dosage: 9 MILLIGRAM, QD
     Route: 065
     Dates: start: 20180316, end: 20180316
  11. ALOXI [Suspect]
     Active Substance: PALONOSETRON HYDROCHLORIDE
     Indication: Prophylaxis
     Dosage: 750 MICROGRAM
     Route: 065
     Dates: start: 20180316, end: 20180320
  12. THROMBOMODULIN ALFA [Suspect]
     Active Substance: THROMBOMODULIN ALFA
     Indication: Prophylaxis
     Dosage: 1.4 DOSAGE FORM, QD
     Route: 065
     Dates: start: 20180316, end: 20180321
  13. DEXAMETHASONE SODIUM PHOSPHATE [Suspect]
     Active Substance: DEXAMETHASONE PHOSPHATE\DEXAMETHASONE SODIUM PHOSPHATE
     Indication: Prophylaxis
     Dosage: 9.9 MILLIGRAM, QD
     Route: 065
     Dates: start: 20180316, end: 20180317
  14. EMEND [Suspect]
     Active Substance: APREPITANT
     Indication: Prophylaxis
     Dosage: 125 MILLIGRAM, QD
     Route: 048
     Dates: start: 20180316, end: 20180316
  15. EMEND [Suspect]
     Active Substance: APREPITANT
     Dosage: 80 MILLIGRAM, QD
     Route: 048
     Dates: start: 20180317, end: 20180320
  16. LEVOTHYROXINE SODIUM [Suspect]
     Active Substance: LEVOTHYROXINE SODIUM
     Indication: Prophylaxis
     Dosage: 50 MICROGRAM, QD
     Route: 048
     Dates: end: 20180322
  17. MAGNESIUM OXIDE [Suspect]
     Active Substance: MAGNESIUM OXIDE
     Indication: Constipation
     Dosage: 660 MILLIGRAM, TID
     Route: 048
     Dates: start: 20180316, end: 20180328
  18. BIO-THREE [Suspect]
     Active Substance: HERBALS
     Indication: Constipation
     Dosage: 1 DOSAGE FORM, TID
     Route: 048
     Dates: start: 20180324
  19. RABEPRAZOLE SODIUM [Suspect]
     Active Substance: RABEPRAZOLE SODIUM
     Indication: Prophylaxis
     Dosage: 10 MILLIGRAM, QD
     Route: 048
     Dates: start: 20180315
  20. PRIMPERAN [Suspect]
     Active Substance: METOCLOPRAMIDE HYDROCHLORIDE
     Indication: Prophylaxis
     Dosage: 10 MG ONE TO THREE TIMES PER DAY
     Route: 065
     Dates: start: 20180317, end: 20180319
  21. PRIMPERAN [Suspect]
     Active Substance: METOCLOPRAMIDE HYDROCHLORIDE
     Dosage: 5 MG PER DOSE AS NEEDED
     Route: 048
     Dates: start: 20180317, end: 20180327
  22. LASIX [Suspect]
     Active Substance: FUROSEMIDE
     Indication: Cardiac failure
     Dosage: 20 MILLIGRAM
     Route: 065
     Dates: start: 20180317, end: 20180321
  23. LASIX [Suspect]
     Active Substance: FUROSEMIDE
     Dosage: 20 MILLIGRAM, QD
     Route: 065
     Dates: start: 20180323, end: 20180323
  24. MICAFUNGIN SODIUM [Suspect]
     Active Substance: MICAFUNGIN SODIUM
     Indication: Prophylaxis
     Dosage: 150 MILLIGRAM, QD
     Route: 041
     Dates: start: 20180322, end: 20180405
  25. AMINO ACIDS\DEXTROSE\ELECTROLYTES NOS\VITAMINS [Suspect]
     Active Substance: AMINO ACIDS\DEXTROSE\ELECTROLYTES NOS\VITAMINS
     Indication: Prophylaxis
     Dosage: 500 ML ONCE OR TWICE DAILY
     Route: 041
     Dates: start: 20180323
  26. CALONAL [Suspect]
     Active Substance: ACETAMINOPHEN
     Indication: Neutropenia
     Dosage: 500 MILLIGRAM
     Route: 048
     Dates: start: 20180315, end: 20180326
  27. SENNOSIDES [Suspect]
     Active Substance: SENNOSIDES
     Indication: Constipation
     Dosage: 24 MILLIGRAM, QD
     Route: 048
     Dates: start: 20180317, end: 20180318
  28. SAXIZON [Suspect]
     Active Substance: HYDROCORTISONE SODIUM SUCCINATE
     Indication: Prophylaxis
     Dosage: 100 MILLILITER
     Route: 065
     Dates: start: 20180317, end: 20180322
  29. BROTIZOLAM [Suspect]
     Active Substance: BROTIZOLAM
     Indication: Product used for unknown indication
     Dosage: 250 MICROGRAM
     Route: 048
     Dates: start: 20180318
  30. POLARAMINE [Suspect]
     Active Substance: DEXCHLORPHENIRAMINE MALEATE
     Indication: Allergic transfusion reaction
     Dosage: 5 MILLIGRAM, QD
     Route: 065
     Dates: start: 20180319, end: 20180319
  31. ZYPREXA [Suspect]
     Active Substance: OLANZAPINE
     Indication: Vomiting
     Dosage: 2.5 MILLIGRAM, QD
     Route: 048
     Dates: start: 20180319, end: 20180405
  32. SODIUM PICOSULFATE [Suspect]
     Active Substance: SODIUM PICOSULFATE
     Indication: Constipation
     Dosage: 12 DROPS PER DOSE (ADJUSTED AT 5 TO 20 DROPS PER DOSE)
     Route: 048
     Dates: start: 20180319, end: 20180319
  33. DEXPANTHENOL [Suspect]
     Active Substance: DEXPANTHENOL
     Indication: Constipation
     Dosage: 500 MILLIGRAM, QD
     Route: 065
     Dates: start: 20180319, end: 20180320
  34. LEVOTHYROXINE SODIUM [Suspect]
     Active Substance: LEVOTHYROXINE SODIUM
     Indication: Prophylaxis
     Dosage: 50 MICROGRAM, QD
     Route: 048
     Dates: start: 20180322
  35. ALBUMIN TANNATE [Suspect]
     Active Substance: ALBUMIN TANNATE
     Indication: Diarrhoea
     Dosage: 1 GRAM, TID
     Route: 048
     Dates: start: 20180326, end: 20180404
  36. SOLU-CORTEF [Suspect]
     Active Substance: HYDROCORTISONE SODIUM SUCCINATE
     Indication: Prophylaxis
     Dosage: 100 MG PER THREE DAYS
     Route: 065
     Dates: start: 20180326, end: 20180402
  37. CUBICIN [Suspect]
     Active Substance: DAPTOMYCIN
     Indication: Sepsis
     Dosage: 270 MILLIGRAM, QD
     Route: 042
     Dates: start: 20180326, end: 20180403
  38. MEROPENEM [Suspect]
     Active Substance: MEROPENEM
     Indication: Febrile neutropenia
     Dosage: 1 GRAM
     Route: 065
     Dates: start: 20180327, end: 20180402
  39. GUAIAZULENE [Suspect]
     Active Substance: GUAIAZULENE
     Indication: Prophylaxis
     Dosage: 20 MILLILITER
     Route: 049
     Dates: start: 20180323, end: 20180405
  40. PRIMPERAN [Suspect]
     Active Substance: METOCLOPRAMIDE HYDROCHLORIDE
     Indication: Prophylaxis
     Dosage: 5 MILLIGRAM
     Route: 048
     Dates: start: 20180317, end: 20180327
  41. FLUTICASONE FUROATE [Suspect]
     Active Substance: FLUTICASONE FUROATE
     Indication: Rhinitis
     Dosage: 2 DOSAGE FORM, QD
     Route: 045
     Dates: start: 20180323, end: 20180403
  42. HYDREA [Suspect]
     Active Substance: HYDROXYUREA
     Indication: Acute myeloid leukaemia
     Dosage: 1 GRAM, BID
     Route: 048
     Dates: start: 20180315, end: 20180315

REACTIONS (9)
  - Sepsis [Recovering/Resolving]
  - Cardiac failure [Recovering/Resolving]
  - Toxic skin eruption [Recovering/Resolving]
  - Allergic transfusion reaction [Recovered/Resolved]
  - Rhinitis [Unknown]
  - Diarrhoea [Recovering/Resolving]
  - Constipation [Recovering/Resolving]
  - Vomiting [Recovering/Resolving]
  - Blood lactate dehydrogenase increased [Recovered/Resolved]

NARRATIVE: CASE EVENT DATE: 20180316
